FAERS Safety Report 13001850 (Version 1)
Quarter: 2016Q4

REPORT INFORMATION
  Report Type: Spontaneous
  Country: ES (occurrence: ES)
  Receive Date: 20161206
  Receipt Date: 20161206
  Transmission Date: 20170207
  Serious: Yes (Other)
  Sender: FDA-Public Use
  Company Number: ES-CLINIGEN GROUP PLC/ CLINIGEN HEALTHCARE LTD-E2B_00002879

PATIENT
  Age: 49 Year
  Sex: Female

DRUGS (2)
  1. FOSCARNET?SODIUM [Suspect]
     Active Substance: FOSCARNET SODIUM
     Dosage: 2.4 MG/0.1 ML 2 TIMES EVERY 1 WEEK ROUTE:INTRA-VITREAL, TWO WEEKS LATER 1 INTRAVITREOUS INJ PER WEEK
  2. FOSCARNET?SODIUM [Suspect]
     Active Substance: FOSCARNET SODIUM
     Indication: CYTOMEGALOVIRUS INFECTION
     Dosage: SYSTEMIC

REACTIONS (2)
  - Vitreous disorder [Unknown]
  - Eye disorder [Unknown]
